FAERS Safety Report 22589380 (Version 1)
Quarter: 2023Q2

REPORT INFORMATION
  Report Type: Spontaneous
  Country: US (occurrence: None)
  Receive Date: 20230609
  Receipt Date: 20230609
  Transmission Date: 20230721
  Serious: Yes (Disabling)
  Sender: FDA-Public Use
  Company Number: None

PATIENT
  Age: 35 Year
  Sex: Female
  Weight: 65.25 kg

DRUGS (3)
  1. BOTULINUM TOXIN NOS [Suspect]
     Active Substance: BOTULINUM TOXIN NOS
     Indication: Skin wrinkling
     Dates: start: 20220821, end: 20230205
  2. DEXILANT [Concomitant]
     Active Substance: DEXLANSOPRAZOLE
  3. Fatty15-omega supplement [Concomitant]

REACTIONS (2)
  - Headache [None]
  - Bone pain [None]

NARRATIVE: CASE EVENT DATE: 20230205
